FAERS Safety Report 8725399 (Version 2)
Quarter: 2012Q4

REPORT INFORMATION
  Report Type: Report from Study
  Country: HR (occurrence: HR)
  Receive Date: 20120815
  Receipt Date: 20120914
  Transmission Date: 20130627
  Serious: Yes (Hospitalization)
  Sender: FDA-Public Use
  Company Number: HR-JNJFOC-20120805301

PATIENT
  Age: 60 Year
  Sex: Male
  Weight: 125 kg

DRUGS (10)
  1. STELARA [Suspect]
     Indication: PSORIASIS
     Dates: start: 20100311
  2. GLICLAZIDE [Concomitant]
     Indication: DIABETES MELLITUS
     Route: 048
     Dates: start: 2010
  3. JANUMET [Concomitant]
     Indication: DIABETES MELLITUS
     Route: 048
     Dates: start: 2010
  4. INDAPAMIDE PERINDOPRIL [Concomitant]
     Indication: HYPERTENSION
     Route: 048
     Dates: start: 2010
  5. NEBILET [Concomitant]
     Indication: HYPERTENSION
     Route: 048
     Dates: start: 2010
  6. AMLOPIN [Concomitant]
     Indication: HYPERTENSION
     Route: 048
     Dates: start: 2010
  7. ASPIRIN PROTECT [Concomitant]
     Indication: CARDIOVASCULAR EVENT PROPHYLAXIS
     Route: 048
     Dates: start: 2010
  8. ALLOPURINOL [Concomitant]
     Indication: GOUT
     Route: 048
     Dates: start: 2008
  9. ATORIS [Concomitant]
     Indication: HYPERCHOLESTEROLAEMIA
     Route: 048
     Dates: start: 2010
  10. TIMALEN [Concomitant]
     Indication: GLAUCOMA
     Route: 047
     Dates: start: 201205

REACTIONS (1)
  - Leukocytosis [Recovering/Resolving]
